FAERS Safety Report 23578635 (Version 1)
Quarter: 2024Q1

REPORT INFORMATION
  Report Type: Report from Study
  Country: US (occurrence: US)
  Receive Date: 20240229
  Receipt Date: 20240229
  Transmission Date: 20240410
  Serious: Yes (Other)
  Sender: FDA-Public Use
  Company Number: US-TAKEDA-2024TUS018570

PATIENT
  Sex: Male

DRUGS (1)
  1. IDURSULFASE [Suspect]
     Active Substance: IDURSULFASE
     Indication: Product used for unknown indication
     Dosage: 12 MILLIGRAM, 1/WEEK
     Route: 042

REACTIONS (3)
  - Heteronymous diplopia [Unknown]
  - Diplopia [Unknown]
  - Influenza [Unknown]
